FAERS Safety Report 12193679 (Version 11)
Quarter: 2020Q2

REPORT INFORMATION
  Report Type: Report from Study
  Country: CA (occurrence: CA)
  Receive Date: 20160321
  Receipt Date: 20200414
  Transmission Date: 20200713
  Serious: Yes (Other)
  Sender: FDA-Public Use
  Company Number: CA-ROCHE-ITM201502IM009904

PATIENT
  Age: 62 Year
  Sex: Female
  Weight: 45.9 kg

DRUGS (25)
  1. ESBRIET [Suspect]
     Active Substance: PIRFENIDONE
     Route: 048
     Dates: start: 201502, end: 2016
  2. CODEINE [Concomitant]
     Active Substance: CODEINE
  3. HYDROMORPH CONTIN [Concomitant]
     Active Substance: HYDROMORPHONE
  4. ESBRIET [Suspect]
     Active Substance: PIRFENIDONE
     Route: 048
     Dates: start: 201502, end: 201502
  5. LIPITOR [Concomitant]
     Active Substance: ATORVASTATIN CALCIUM
  6. ELAVIL [Concomitant]
     Active Substance: AMITRIPTYLINE HYDROCHLORIDE
  7. NORVASC [Concomitant]
     Active Substance: AMLODIPINE BESYLATE
  8. NEURONTIN [Concomitant]
     Active Substance: GABAPENTIN
  9. ESBRIET [Suspect]
     Active Substance: PIRFENIDONE
     Route: 048
     Dates: start: 2016, end: 2016
  10. ESBRIET [Suspect]
     Active Substance: PIRFENIDONE
     Route: 048
     Dates: start: 2016, end: 201603
  11. LOSARTAN. [Concomitant]
     Active Substance: LOSARTAN
  12. SYMBICORT [Concomitant]
     Active Substance: BUDESONIDE\FORMOTEROL FUMARATE DIHYDRATE
  13. SYNTHROID [Concomitant]
     Active Substance: LEVOTHYROXINE SODIUM
  14. EPIPEN [Concomitant]
     Active Substance: EPINEPHRINE
     Dosage: FREQUENCY- AS REQUIRED
     Route: 065
  15. PANTOLOC [PANTOPRAZOLE] [Concomitant]
     Active Substance: PANTOPRAZOLE SODIUM
  16. METFORMIN [Concomitant]
     Active Substance: METFORMIN HYDROCHLORIDE
     Route: 065
  17. MOTRIN [Concomitant]
     Active Substance: IBUPROFEN
  18. ESBRIET [Suspect]
     Active Substance: PIRFENIDONE
     Route: 048
     Dates: start: 2016, end: 2016
  19. ESBRIET [Suspect]
     Active Substance: PIRFENIDONE
     Dosage: LAST KNOWN DOSING CONFIRMED 16/MAR/2019
     Route: 048
     Dates: start: 20160316, end: 201909
  20. ESBRIET [Suspect]
     Active Substance: PIRFENIDONE
     Dosage: 3-2-3 (801 MG- 534 MG- 801 MG), TOTAL 2136 MG
     Route: 048
     Dates: start: 20200323
  21. MOTILIUM [Concomitant]
     Active Substance: DOMPERIDONE
  22. ONGLYZA [Concomitant]
     Active Substance: SAXAGLIPTIN HYDROCHLORIDE
  23. PAROXETINE. [Concomitant]
     Active Substance: PAROXETINE
  24. ESBRIET [Suspect]
     Active Substance: PIRFENIDONE
     Indication: IDIOPATHIC PULMONARY FIBROSIS
     Route: 048
     Dates: start: 20150205, end: 201502
  25. NAPROXEN. [Concomitant]
     Active Substance: NAPROXEN

REACTIONS (12)
  - Mass [Not Recovered/Not Resolved]
  - Dyspnoea [Unknown]
  - Ill-defined disorder [Unknown]
  - Body mass index decreased [Unknown]
  - Weight decreased [Unknown]
  - Head discomfort [Not Recovered/Not Resolved]
  - Pulmonary function test abnormal [Unknown]
  - Nausea [Unknown]
  - Cough [Unknown]
  - Fatigue [Not Recovered/Not Resolved]
  - Decreased appetite [Not Recovered/Not Resolved]
  - Vomiting [Recovered/Resolved]

NARRATIVE: CASE EVENT DATE: 20150206
